FAERS Safety Report 25735971 (Version 1)
Quarter: 2025Q3

REPORT INFORMATION
  Report Type: Spontaneous
  Country: TW (occurrence: TW)
  Receive Date: 20250828
  Receipt Date: 20250828
  Transmission Date: 20251020
  Serious: Yes (Hospitalization, Other)
  Sender: Medicap Laboratories
  Company Number: TW-Medicap-000034

PATIENT
  Age: 28 Year
  Sex: Female

DRUGS (7)
  1. TOPIRAMATE [Suspect]
     Active Substance: TOPIRAMATE
     Indication: Obesity
     Route: 065
  2. PSEUDOEPHEDRINE [Suspect]
     Active Substance: PSEUDOEPHEDRINE
     Indication: Obesity
     Route: 065
  3. LIOTHYRONINE SODIUM [Suspect]
     Active Substance: LIOTHYRONINE SODIUM
     Indication: Obesity
     Route: 065
  4. HYDROCHLOROTHIAZIDE [Suspect]
     Active Substance: HYDROCHLOROTHIAZIDE
     Indication: Obesity
     Route: 065
  5. FLUOXETINE [Suspect]
     Active Substance: FLUOXETINE HYDROCHLORIDE
     Indication: Obesity
     Route: 065
  6. OXAZOLAM [Suspect]
     Active Substance: OXAZOLAM
     Indication: Obesity
     Route: 065
  7. METFORMIN [Suspect]
     Active Substance: METFORMIN HYDROCHLORIDE
     Indication: Obesity
     Route: 065

REACTIONS (2)
  - Multiple acyl-coenzyme A dehydrogenase deficiency [Recovered/Resolved]
  - Myopathy [Recovered/Resolved]
